FAERS Safety Report 6019153-7 (Version None)
Quarter: 2008Q4

REPORT INFORMATION
  Report Type: 
  Country: None (occurrence: None)
  Receive Date: 20081224
  Receipt Date: 20081219
  Transmission Date: 20090506
  Serious: Yes (Death)
  Sender: FDA-Public Use
  Company Number: US-PURDUE-USA_2008_0036349

PATIENT

DRUGS (1)
  1. OXYCONTIN [Suspect]
     Indication: DRUG ABUSE
     Dosage: UNK MG, UNK
     Route: 048

REACTIONS (1)
  - ACCIDENTAL DRUG INTAKE BY CHILD [None]
